FAERS Safety Report 17996198 (Version 1)
Quarter: 2020Q3

REPORT INFORMATION
  Report Type: Spontaneous
  Country: US (occurrence: US)
  Receive Date: 20200708
  Receipt Date: 20200708
  Transmission Date: 20201103
  Serious: No
  Sender: FDA-Public Use
  Company Number: US-UPSHER-SMITH LABORATORIES, LLC-2020USL00147

PATIENT
  Sex: Male

DRUGS (1)
  1. TESTOSTERONE. [Suspect]
     Active Substance: TESTOSTERONE
     Indication: PITUITARY TUMOUR
     Dosage: UNK
     Route: 061
     Dates: start: 2019

REACTIONS (3)
  - Product administered at inappropriate site [Unknown]
  - Product dose omission issue [Unknown]
  - Asthenia [Unknown]
